FAERS Safety Report 9532322 (Version 1)
Quarter: 2013Q3

REPORT INFORMATION
  Report Type: Report from Study
  Country: BR (occurrence: BR)
  Receive Date: 20130918
  Receipt Date: 20130918
  Transmission Date: 20140515
  Serious: Yes (Other)
  Sender: FDA-Public Use
  Company Number: PHHY2013BR102129

PATIENT
  Sex: Male
  Weight: 86 kg

DRUGS (3)
  1. GILENYA [Suspect]
     Indication: MULTIPLE SCLEROSIS
     Route: 048
  2. AMLODIPINE [Concomitant]
     Indication: BLOOD PRESSURE
  3. TAMSULOSIN [Concomitant]

REACTIONS (5)
  - Renal disorder [Not Recovered/Not Resolved]
  - Immunodeficiency [Not Recovered/Not Resolved]
  - Pharyngitis [Not Recovered/Not Resolved]
  - Micturition urgency [Not Recovered/Not Resolved]
  - Bladder pain [Not Recovered/Not Resolved]
